FAERS Safety Report 10062669 (Version 1)
Quarter: 2014Q1

REPORT INFORMATION
  Report Type: Spontaneous
  Country: US (occurrence: None)
  Receive Date: 20140313
  Receipt Date: 20140313
  Transmission Date: 20141002
  Serious: No
  Sender: FDA-Public Use
  Company Number: 1000049921

PATIENT
  Age: 80 Year
  Sex: Male

DRUGS (9)
  1. DALIRESP (ROFLUMILAST) (500 MICROGRAM, TABLETS) [Suspect]
     Indication: CHRONIC OBSTRUCTIVE PULMONARY DISEASE
     Dosage: 500 MCG (500 MCG, 1 IN 1 D), ORAL
     Route: 048
     Dates: start: 201309
  2. ALBUTEROL SULFATE (SALBUTAMOL SULFATE) [Concomitant]
  3. ALLOPURINOL [Concomitant]
  4. FUROSEMIDE (FUROSEMIDE) [Concomitant]
  5. KLOR CON (POTASSIUM CHLORIDE) [Concomitant]
  6. DOXAZOSIN (DOXAZOSIN) [Concomitant]
  7. TEMAZEPAM [Concomitant]
  8. ASPIRIN (ACETYLSALICYLIC ACID) [Concomitant]
  9. BACLOFEN [Concomitant]

REACTIONS (1)
  - Insomnia [None]
